FAERS Safety Report 7777581-3 (Version None)
Quarter: 2011Q3

REPORT INFORMATION
  Report Type: 
  Country: None (occurrence: None)
  Receive Date: 20110926
  Receipt Date: 20110920
  Transmission Date: 20111222
  Serious: Yes (Death, Life-Threatening, Hospitalization)
  Sender: FDA-Public Use
  Company Number: US-ELI_LILLY_AND_COMPANY-08-02-14781

PATIENT
  Sex: Female
  Weight: 90.249 kg

DRUGS (12)
  1. MULTI-VITAMIN [Concomitant]
  2. MIRAPEX [Concomitant]
     Indication: RESTLESS LEGS SYNDROME
  3. DECADRON [Concomitant]
     Indication: PREMEDICATION
  4. MAXIDEX [Concomitant]
     Indication: OEDEMA PERIPHERAL
  5. TYLENOL                                 /SCH/ [Concomitant]
     Indication: HEADACHE
  6. VITAMIN A [Concomitant]
  7. PEMETREXED [Suspect]
     Indication: NON-SMALL CELL LUNG CANCER METASTATIC
     Dosage: 375 MG/M2, OTHER
     Route: 042
     Dates: start: 20080424
  8. DARVOCET [Concomitant]
  9. SLO-MAG [Concomitant]
  10. ARIMIDEX [Concomitant]
     Dosage: 1 MG, UNK
  11. CETUXIMAB [Suspect]
     Indication: NON-SMALL CELL LUNG CANCER METASTATIC
     Dosage: 250 MG/M2, OTHER
     Route: 042
     Dates: start: 20080424
  12. ZOFRAN [Concomitant]
     Dosage: UNK, PRN

REACTIONS (1)
  - PNEUMONITIS [None]
